FAERS Safety Report 22124617 (Version 1)
Quarter: 2023Q1

REPORT INFORMATION
  Report Type: Spontaneous
  Country: US (occurrence: US)
  Receive Date: 20230322
  Receipt Date: 20230322
  Transmission Date: 20230417
  Serious: No
  Sender: FDA-Public Use
  Company Number: US-PFIZER INC-202300114990

PATIENT
  Age: 2 Year
  Sex: Male
  Weight: 11.34 kg

DRUGS (2)
  1. GENOTROPIN [Suspect]
     Active Substance: SOMATROPIN
     Indication: Growth disorder
     Dosage: 0.4 MG, 1X/DAY (0.4 MG VIA INJECTION ONCE A DAY)
     Dates: start: 20230307
  2. GENOTROPIN [Suspect]
     Active Substance: SOMATROPIN
     Indication: Blood glucose abnormal
     Dosage: 0.4 MG, 1X/DAY (0.4 MG VIA INJECTION ONCE A DAY)
     Dates: start: 20230307

REACTIONS (3)
  - Intentional device use issue [Unknown]
  - Device issue [Unknown]
  - Device mechanical issue [Unknown]

NARRATIVE: CASE EVENT DATE: 20230301
